FAERS Safety Report 5987502-1 (Version None)
Quarter: 2008Q4

REPORT INFORMATION
  Report Type: 
  Country: None (occurrence: None)
  Receive Date: 20081209
  Receipt Date: 20081127
  Transmission Date: 20090506
  Serious: Yes (Hospitalization)
  Sender: FDA-Public Use
  Company Number: FR-ELI_LILLY_AND_COMPANY-FR200812000882

PATIENT
  Sex: Female

DRUGS (1)
  1. CYMBALTA [Suspect]
     Indication: DEPRESSION
     Dosage: 60 MG, DAILY (1/D)
     Route: 048
     Dates: start: 20081101, end: 20081101

REACTIONS (11)
  - ALPHA 2 GLOBULIN INCREASED [None]
  - ALPHA-1 ACID GLYCOPROTEIN INCREASED [None]
  - ANAEMIA [None]
  - C-REACTIVE PROTEIN INCREASED [None]
  - DRUG RASH WITH EOSINOPHILIA AND SYSTEMIC SYMPTOMS [None]
  - GAMMA-GLUTAMYLTRANSFERASE INCREASED [None]
  - HAPTOGLOBIN INCREASED [None]
  - HEADACHE [None]
  - HYPERTHERMIA [None]
  - INFLAMMATION [None]
  - NEUTROPHILIA [None]
